FAERS Safety Report 14259130 (Version 1)
Quarter: 2017Q4

REPORT INFORMATION
  Report Type: Report from Study
  Country: US (occurrence: BR)
  Receive Date: 20171207
  Receipt Date: 20171207
  Transmission Date: 20180321
  Serious: Yes (Death, Hospitalization, Other)
  Sender: FDA-Public Use
  Company Number: US-SUNOVION-2017SUN005186

PATIENT
  Sex: Female

DRUGS (1)
  1. INDACATEROL AND GLYCOPYRROLATE [Suspect]
     Active Substance: GLYCOPYRROLATE\INDACATEROL MALEATE
     Indication: EMPHYSEMA
     Dosage: UNK
     Route: 055

REACTIONS (3)
  - Nosocomial infection [Fatal]
  - Emphysema [Fatal]
  - Femur fracture [Fatal]
